FAERS Safety Report 18547132 (Version 3)
Quarter: 2021Q2

REPORT INFORMATION
  Report Type: Report from Study
  Country: US (occurrence: US)
  Receive Date: 20201126
  Receipt Date: 20210414
  Transmission Date: 20210717
  Serious: No
  Sender: FDA-Public Use
  Company Number: NVSC2020US308304

PATIENT
  Sex: Female

DRUGS (1)
  1. COSENTYX [Suspect]
     Active Substance: SECUKINUMAB
     Indication: ANKYLOSING SPONDYLITIS
     Dosage: 150 MG, Q2W
     Route: 058
     Dates: start: 202010

REACTIONS (3)
  - Product prescribing error [Recovered/Resolved]
  - Incorrect dose administered [Recovered/Resolved]
  - Headache [Recovered/Resolved]
